FAERS Safety Report 14782353 (Version 1)
Quarter: 2018Q2

REPORT INFORMATION
  Report Type: Spontaneous
  Country: US (occurrence: US)
  Receive Date: 20180420
  Receipt Date: 20180420
  Transmission Date: 20180711
  Serious: No
  Sender: FDA-Public Use
  Company Number: US-PFIZER INC-2018162004

PATIENT
  Sex: Female

DRUGS (1)
  1. SULFASALAZINE. [Suspect]
     Active Substance: SULFASALAZINE
     Dosage: UNK

REACTIONS (5)
  - Nausea [Unknown]
  - Gastrointestinal disorder [Unknown]
  - Vomiting [Unknown]
  - Drug hypersensitivity [Unknown]
  - Drug intolerance [Unknown]
